FAERS Safety Report 8096144-6 (Version None)
Quarter: 2012Q1

REPORT INFORMATION
  Report Type: 
  Country: None (occurrence: None)
  Receive Date: 20120131
  Receipt Date: 20120123
  Transmission Date: 20120608
  Serious: Yes (Death, Life-Threatening)
  Sender: FDA-Public Use
  Company Number: JP-GLAXOSMITHKLINE-B0766590A

PATIENT
  Age: 56 Year
  Sex: Female
  Weight: 35 kg

DRUGS (12)
  1. FLOLAN [Suspect]
     Route: 042
     Dates: start: 20081201
  2. METILDIGOXIN [Concomitant]
     Dosage: 1IUAX PER DAY
     Route: 048
  3. SPIRONOLACTONE [Concomitant]
     Dosage: 25MG PER DAY
     Route: 048
  4. TADALAFIL [Concomitant]
     Route: 048
  5. UNKNOWN DRUG [Concomitant]
     Route: 065
  6. FLOLAN [Suspect]
     Route: 042
  7. VOLIBRIS [Suspect]
     Route: 048
  8. ASPIRIN [Concomitant]
     Dosage: 1IUAX PER DAY
     Route: 048
  9. FLOLAN [Suspect]
     Route: 042
     Dates: start: 20080101
  10. DENOPAMINE [Concomitant]
     Dosage: 40MG PER DAY
     Route: 048
  11. PIMOBENDAN [Concomitant]
     Dosage: 5MG PER DAY
     Route: 048
  12. FUROSEMIDE [Concomitant]
     Dosage: 40MG PER DAY
     Route: 048

REACTIONS (16)
  - DILATATION VENTRICULAR [None]
  - BUNDLE BRANCH BLOCK RIGHT [None]
  - ELECTROCARDIOGRAM ST SEGMENT DEPRESSION [None]
  - CARDIAC FAILURE [None]
  - PNEUMONIA [None]
  - CORONARY ARTERY DISEASE [None]
  - PULMONARY ALVEOLAR HAEMORRHAGE [None]
  - SINUS RHYTHM [None]
  - OEDEMA PERIPHERAL [None]
  - CORONARY ARTERY STENOSIS [None]
  - CARDIAC MURMUR [None]
  - BREATH SOUNDS ABNORMAL [None]
  - RIGHT VENTRICULAR FAILURE [None]
  - PULMONARY HYPERTENSION [None]
  - PULMONARY ARTERY DILATATION [None]
  - GENERAL PHYSICAL HEALTH DETERIORATION [None]
